FAERS Safety Report 6453951 (Version 3)
Quarter: 2020Q3

REPORT INFORMATION
  Report Type: Report from Study
  Country: DK (occurrence: DK)
  Receive Date: 20071029
  Receipt Date: 20080317
  Transmission Date: 20201104
  Serious: Yes (Hospitalization)
  Sender: FDA-Public Use
  Company Number: DK-ROCHE-509378

PATIENT
  Age: 83 Year
  Sex: Female
  Weight: 59.2 kg

DRUGS (9)
  1. IBANDRONIC ACID. [Suspect]
     Active Substance: IBANDRONIC ACID
     Dosage: THE PATIENT ENROLLED IN BM16550 TRIAL.
     Route: 065
  2. SIMVASTATIN. [Concomitant]
     Active Substance: SIMVASTATIN
     Dosage: DOSE: 40 MG X1
     Dates: start: 20050529
  3. CALCIUM [Concomitant]
     Active Substance: CALCIUM
  4. IBANDRONIC ACID. [Suspect]
     Active Substance: IBANDRONIC ACID
     Indication: OSTEOPOROSIS POSTMENOPAUSAL
     Dosage: FORM : INFUSION.
     Route: 042
     Dates: start: 20050126
  5. BENDROFLUMETHIAZIDE\POTASSIUM CHLORIDE [Concomitant]
     Active Substance: BENDROFLUMETHIAZIDE\POTASSIUM CHLORIDE
     Dosage: DOSE: 1X1
     Dates: start: 20050909
  6. NIZATIDINE. [Concomitant]
     Active Substance: NIZATIDINE
     Dosage: DOSE: 15 MG X2.
     Dates: start: 20040803
  7. VITAMIN D2 [Concomitant]
     Active Substance: ERGOCALCIFEROL
  8. ASPIRIN\DIPYRIDAMOLE [Concomitant]
     Active Substance: ASPIRIN\DIPYRIDAMOLE
     Dosage: DOSE 1X2
     Dates: start: 20050529
  9. RAMIPRIL. [Concomitant]
     Active Substance: RAMIPRIL
     Dates: start: 20050529

REACTIONS (1)
  - Cerebral ischaemia [Recovered/Resolved]

NARRATIVE: CASE EVENT DATE: 20070526
